FAERS Safety Report 5107300-0 (Version None)
Quarter: 2006Q3

REPORT INFORMATION
  Report Type: 
  Country: None (occurrence: None)
  Receive Date: 20060914
  Receipt Date: 20060830
  Transmission Date: 20061208
  Serious: No
  Sender: FDA-Public Use
  Company Number: 2006S1008211

PATIENT
  Age: 54 Year
  Sex: Female
  Weight: 181.4388 kg

DRUGS (2)
  1. FENTANYL TRANSDERMAL SYSTEM [Suspect]
     Dosage: SEE IMAGE
     Route: 062
     Dates: start: 20060801, end: 20060813
  2. FENTANYL TRANSDERMAL SYSTEM [Suspect]
     Dosage: SEE IMAGE
     Route: 062
     Dates: start: 20060816, end: 20060818

REACTIONS (3)
  - DEPRESSED LEVEL OF CONSCIOUSNESS [None]
  - HYPOVENTILATION [None]
  - RESPIRATORY ACIDOSIS [None]
